FAERS Safety Report 4680992-6 (Version None)
Quarter: 2005Q2

REPORT INFORMATION
  Report Type: 
  Country: None (occurrence: None)
  Receive Date: 20050603
  Receipt Date: 20040917
  Transmission Date: 20051028
  Serious: Yes (Life-Threatening)
  Sender: FDA-Public Use
  Company Number: PHBS2004DE12300

PATIENT
  Age: 27 Year
  Sex: Male

DRUGS (4)
  1. CARBAMAZEPINE [Suspect]
     Indication: EPILEPSY
     Dosage: 400 MG, TID
     Route: 048
  2. ZACPAC [Suspect]
     Indication: HELICOBACTER GASTRITIS
     Dosage: 3 DF, BID
     Route: 048
     Dates: start: 20040713
  3. PHENYTOIN [Concomitant]
     Indication: EPILEPSY
     Dosage: 100 MG, QID
     Route: 048
  4. BUPRENORPHINE HCL [Concomitant]
     Indication: MENTAL DISORDER
     Dosage: 7 MG, QD
     Route: 048

REACTIONS (5)
  - DRUG INTERACTION [None]
  - DYSPNOEA [None]
  - HYPERHIDROSIS [None]
  - PANIC REACTION [None]
  - TACHYCARDIA [None]
